FAERS Safety Report 16960065 (Version 1)
Quarter: 2019Q4

REPORT INFORMATION
  Report Type: Spontaneous
  Country: US (occurrence: US)
  Receive Date: 20191025
  Receipt Date: 20191025
  Transmission Date: 20200122
  Serious: No
  Sender: FDA-Public Use
  Company Number: US-SUNOVION-2019SUN004323

PATIENT
  Sex: Male

DRUGS (1)
  1. LATUDA [Suspect]
     Active Substance: LURASIDONE HYDROCHLORIDE
     Indication: BIPOLAR DISORDER
     Dosage: 40 MG AM AND 80 MG PM
     Route: 048

REACTIONS (5)
  - Off label use [Unknown]
  - Product prescribing error [Unknown]
  - Product dose omission [Unknown]
  - Anxiety [Unknown]
  - Mania [Unknown]
